FAERS Safety Report 6326451-6 (Version None)
Quarter: 2009Q3

REPORT INFORMATION
  Report Type: 
  Country: None (occurrence: None)
  Receive Date: 20090825
  Receipt Date: 20070523
  Transmission Date: 20100115
  Serious: Yes (Other)
  Sender: FDA-Public Use
  Company Number: US-ASTRAZENECA-2006UW21300

PATIENT
  Age: 19743 Day
  Sex: Female
  Weight: 90.7 kg

DRUGS (14)
  1. SEROQUEL [Suspect]
     Indication: DEPRESSION
     Route: 048
     Dates: start: 20040412, end: 20060505
  2. SEROQUEL [Suspect]
     Route: 048
     Dates: start: 20050601, end: 20060701
  3. TRAZODONE HCL [Suspect]
  4. TRAZODONE HCL [Suspect]
     Dates: start: 20050315
  5. LIPITOR [Concomitant]
     Dates: start: 20041215
  6. FLEXERIL [Concomitant]
     Dosage: 10 MG THREE TIMES A DAY AS NEEDED
     Dates: start: 19950324
  7. PREDNISONE TAB [Concomitant]
     Dosage: 4-40 MG DAILY
     Route: 048
     Dates: start: 20000222
  8. AZMACORT [Concomitant]
     Dosage: 4-8 PUFFS DAILY
     Dates: start: 20020512
  9. TOPROL-XL [Concomitant]
     Dosage: 25-150 MG DAILY
     Dates: start: 20000121
  10. UNIRETIC [Concomitant]
     Dosage: STRENGTH: 7.5/12.5 MG
     Dates: start: 20030114
  11. SINGULAIR [Concomitant]
     Dates: start: 20030120
  12. ADVAIR HFA [Concomitant]
     Dosage: STRENGTH: 250/50 MG DOSE: ONE INHALATION TWO TIMES A DAY
     Dates: start: 20030120
  13. NAPROSYN [Concomitant]
     Dates: start: 19950324
  14. LOZOL [Concomitant]
     Dosage: 0.75 MG- 1.25 MG DAILY
     Dates: start: 19941026

REACTIONS (2)
  - DIABETES MELLITUS [None]
  - NEUROPATHY PERIPHERAL [None]
